FAERS Safety Report 4986640-X (Version None)
Quarter: 2006Q2

REPORT INFORMATION
  Report Type: 
  Country: None (occurrence: None)
  Receive Date: 20060428
  Receipt Date: 20060419
  Transmission Date: 20061013
  Serious: Yes (Other)
  Sender: FDA-Public Use
  Company Number: PHEH2006US05170

PATIENT
  Age: 50 Year
  Sex: Female
  Weight: 82 kg

DRUGS (1)
  1. ZOMETA [Suspect]
     Dosage: 4 MG Q3MONTHS FOR A TOTAL OF 3 DOSES
     Dates: start: 20050919, end: 20060323

REACTIONS (4)
  - INJURY [None]
  - LACERATION [None]
  - WOUND CLOSURE [None]
  - WOUND TREATMENT [None]
